FAERS Safety Report 7267883-1 (Version None)
Quarter: 2011Q1

REPORT INFORMATION
  Report Type: 
  Country: None (occurrence: None)
  Receive Date: 20110201
  Receipt Date: 20110127
  Transmission Date: 20110831
  Serious: Yes (Hospitalization)
  Sender: FDA-Public Use
  Company Number: FR-ROCHE-756102

PATIENT
  Sex: Male

DRUGS (5)
  1. EFFEXOR [Suspect]
     Route: 048
  2. TRANXENE [Suspect]
     Route: 048
  3. RIVOTRIL [Suspect]
     Route: 048
  4. TERCIAN [Suspect]
     Route: 048
  5. IMOVANE [Suspect]
     Route: 048

REACTIONS (1)
  - TOXICITY TO VARIOUS AGENTS [None]
